FAERS Safety Report 7470985 (Version 7)
Quarter: 2013Q2

REPORT INFORMATION
  Report Type: Spontaneous
  Country: US (occurrence: US)
  Receive Date: 20100713
  Receipt Date: 20130402
  Transmission Date: 20140414
  Serious: Yes (Hospitalization, Other)
  Sender: FDA-Public Use
  Company Number: US-AMGEN-QUU422515

PATIENT
  Age: 18 Year
  Sex: Male
  Weight: 60.95 kg

DRUGS (17)
  1. EPOGEN [Suspect]
     Indication: RENAL FAILURE CHRONIC
     Dosage: UNK UNK, UNK
     Route: 058
     Dates: start: 2007, end: 2010
  2. ARANESP [Suspect]
     Indication: RENAL FAILURE CHRONIC
     Dosage: 300 MUG, QWK
     Route: 042
     Dates: start: 2010, end: 20100701
  3. CALCITRIOL [Concomitant]
     Dosage: .5 MUG, 3 TIMES/WK
     Route: 048
  4. GABAPENTIN [Concomitant]
     Dosage: 500 MG, TID
     Route: 048
  5. OSELTAMIVIR [Concomitant]
     Dosage: UNK
  6. METOPROLOL TARTRATE [Concomitant]
     Dosage: 25 MG, BID
     Route: 048
  7. LOSARTAN POTASSIUM [Concomitant]
     Dosage: UNK
  8. PANTOPRAZOLE SODIUM [Concomitant]
     Dosage: 40 MG, QD
     Route: 048
  9. MINOXIDIL [Concomitant]
     Dosage: UNK
  10. CLONAZEPAM [Concomitant]
     Dosage: 0.5 MG, QD
     Route: 048
  11. HEPARIN [Concomitant]
     Dosage: 3500 IU/KG, UNK
     Route: 042
  12. NIFEDIPINE [Concomitant]
     Dosage: 60 MG, BID
     Route: 048
  13. ONDANSETRON HYDROCHLORIDE [Concomitant]
     Dosage: 8 MG, Q6H
     Route: 048
  14. OXYCODONE [Concomitant]
     Dosage: UNK UNK, PRN
     Route: 048
  15. LIDOCAINE [Concomitant]
     Dosage: 5 %, PRN
  16. CLONIDINE [Concomitant]
     Dosage: .1 MG, PRN
     Route: 048
  17. DIPHENHYDRAMINE HYDROCHLORIDE [Concomitant]
     Dosage: UNK UNK, PRN

REACTIONS (7)
  - Therapeutic response decreased [Not Recovered/Not Resolved]
  - Bone marrow myelogram abnormal [Not Recovered/Not Resolved]
  - Anaemia [Unknown]
  - Haemoglobin abnormal [Unknown]
  - Focal segmental glomerulosclerosis [Unknown]
  - Anti-erythropoietin antibody positive [Unknown]
  - Aplasia pure red cell [Not Recovered/Not Resolved]
